FAERS Safety Report 9951295 (Version 1)
Quarter: 2014Q1

REPORT INFORMATION
  Report Type: Report from Study
  Country: US (occurrence: US)
  Receive Date: 20140304
  Receipt Date: 20140304
  Transmission Date: 20141002
  Serious: No
  Sender: FDA-Public Use
  Company Number: US-ABBVIE-13P-163-1071435-00

PATIENT
  Age: 67 Year
  Sex: Female
  Weight: 81.72 kg

DRUGS (19)
  1. HUMIRA [Suspect]
     Indication: RHEUMATOID ARTHRITIS
     Dates: start: 2011
  2. ALLEGRA [Concomitant]
     Indication: HYPERSENSITIVITY
  3. ATENOLOL [Concomitant]
     Indication: HYPERTENSION
  4. CALCIUM W/MAGNESIUM/ZINC [Concomitant]
     Indication: SUPPLEMENTATION THERAPY
  5. COZAAR [Concomitant]
     Indication: HYPERTENSION
  6. DOXEPIN [Concomitant]
     Indication: DEPRESSION
  7. ESTRADIOL [Concomitant]
     Indication: HORMONE REPLACEMENT THERAPY
  8. FLUTICASONE [Concomitant]
     Indication: HYPERSENSITIVITY
     Dosage: SPRAY
  9. FOLIC ACID [Concomitant]
     Indication: POLYMEDICATION
  10. HYDROCHLOROTHIAZIDE [Concomitant]
     Indication: FLUID RETENTION
  11. MULTIVITAMIN [Concomitant]
     Indication: SUPPLEMENTATION THERAPY
  12. METHOTREXATE [Concomitant]
     Indication: RHEUMATOID ARTHRITIS
  13. POTASSIUM [Concomitant]
     Indication: HYPOVITAMINOSIS
  14. PREDNISONE [Concomitant]
     Indication: RHEUMATOID ARTHRITIS
  15. PRO-AIRE [Concomitant]
     Indication: ASTHMA
  16. QVAR [Concomitant]
     Indication: ASTHMA
  17. TRAMADOL [Concomitant]
     Indication: PAIN
  18. TYLENOL [Concomitant]
     Indication: PAIN
  19. VITAMIN D [Concomitant]
     Indication: SUPPLEMENTATION THERAPY

REACTIONS (2)
  - Rash [Recovered/Resolved]
  - Injection site erythema [Recovered/Resolved]
